FAERS Safety Report 17678727 (Version 1)
Quarter: 2020Q2

REPORT INFORMATION
  Report Type: Spontaneous
  Country: US (occurrence: US)
  Receive Date: 20200417
  Receipt Date: 20200417
  Transmission Date: 20200714
  Serious: No
  Sender: FDA-Public Use
  Company Number: US-ASTRAZENECA-2020SE49939

PATIENT
  Age: 77 Year
  Sex: Female
  Weight: 57.6 kg

DRUGS (7)
  1. NIACIN. [Concomitant]
     Active Substance: NIACIN
     Indication: FIBROMYALGIA
     Route: 048
  2. CALCIUM WITH VITAMIN D [Concomitant]
     Active Substance: CALCIUM\VITAMIN D
     Indication: FIBROMYALGIA
     Dosage: 1000, DAILY
     Route: 048
  3. SYMBICORT [Suspect]
     Active Substance: BUDESONIDE\FORMOTEROL FUMARATE DIHYDRATE
     Indication: CHRONIC OBSTRUCTIVE PULMONARY DISEASE
     Dosage: 160/4.5, TWO PUFFS, TWICE DAILY
     Route: 055
     Dates: start: 2019
  4. VITMIN D3 [Concomitant]
     Indication: FIBROMYALGIA
     Route: 048
  5. SYNTHROID [Concomitant]
     Active Substance: LEVOTHYROXINE SODIUM
     Indication: THYROID DISORDER
     Route: 048
  6. ZINC. [Concomitant]
     Active Substance: ZINC
     Indication: FIBROMYALGIA
     Route: 048
  7. POTASSIUM MAGNESIUM ASPARTATE [Concomitant]
     Active Substance: MAGNESIUM ASPARTATE\POTASSIUM ASPARTATE
     Indication: FIBROMYALGIA
     Dosage: DAILY
     Route: 048

REACTIONS (3)
  - Feeling jittery [Unknown]
  - Intentional product misuse [Unknown]
  - Agitation [Unknown]
